FAERS Safety Report 8073093-0 (Version None)
Quarter: 2012Q1

REPORT INFORMATION
  Report Type: 
  Country: None (occurrence: None)
  Receive Date: 20120126
  Receipt Date: 20120123
  Transmission Date: 20120608
  Serious: Yes (Other)
  Sender: FDA-Public Use
  Company Number: DE-BAYER-2011-116108

PATIENT
  Age: 47 Year
  Sex: Male
  Weight: 97 kg

DRUGS (6)
  1. PLAVIX [Concomitant]
  2. OXYCODONE HYDROCHLORIDE [Concomitant]
     Dosage: 20 UNK, UNK
  3. SIMVASTATIN [Concomitant]
  4. BETASERON [Suspect]
     Indication: MULTIPLE SCLEROSIS
  5. ASPIRIN [Concomitant]
  6. RAMIPRIL [Concomitant]

REACTIONS (5)
  - BLOOD THYROID STIMULATING HORMONE INCREASED [None]
  - HEPATIC ENZYME INCREASED [None]
  - ALANINE AMINOTRANSFERASE INCREASED [None]
  - GAMMA-GLUTAMYLTRANSFERASE INCREASED [None]
  - ASPARTATE AMINOTRANSFERASE INCREASED [None]
